FAERS Safety Report 17117345 (Version 1)
Quarter: 2019Q4

REPORT INFORMATION
  Report Type: Spontaneous
  Country: US (occurrence: US)
  Receive Date: 20191205
  Receipt Date: 20191205
  Transmission Date: 20200122
  Serious: No
  Sender: FDA-Public Use
  Company Number: US-NEUROCRINE BIOSCIENCES INC.-2019NBI03629

PATIENT
  Age: 41 Year
  Sex: Female
  Weight: 96.25 kg

DRUGS (19)
  1. INGREZZA [Suspect]
     Active Substance: VALBENAZINE
     Route: 048
     Dates: start: 20191112, end: 20191122
  2. CATAPRES [Concomitant]
     Active Substance: CLONIDINE HYDROCHLORIDE
  3. ZOFRAN ODT [Concomitant]
     Active Substance: ONDANSETRON HYDROCHLORIDE
     Dosage: 4 MG EVERY 8 HOURS PRN
  4. EFFEXOR XR [Concomitant]
     Active Substance: VENLAFAXINE HYDROCHLORIDE
  5. TERBINAFINE. [Concomitant]
     Active Substance: TERBINAFINE
  6. INGREZZA [Suspect]
     Active Substance: VALBENAZINE
     Indication: TARDIVE DYSKINESIA
     Route: 048
     Dates: start: 20191105, end: 20191111
  7. PRILOSEC [Concomitant]
     Active Substance: OMEPRAZOLE MAGNESIUM
     Dosage: 20 MG 2X DAILY
  8. FLONASE [Concomitant]
     Active Substance: FLUTICASONE PROPIONATE
  9. ATIVAN [Concomitant]
     Active Substance: LORAZEPAM
     Dosage: 0.5MG 1-2X DAILY PRN
  10. SINGULAIR [Concomitant]
     Active Substance: MONTELUKAST SODIUM
  11. MIRALAX [Concomitant]
     Active Substance: POLYETHYLENE GLYCOL 3350
  12. CLOZARIL [Concomitant]
     Active Substance: CLOZAPINE
  13. DOCUSATE [Concomitant]
     Active Substance: DOCUSATE
  14. DITROPAN XL [Concomitant]
     Active Substance: OXYBUTYNIN CHLORIDE
  15. DULCOLAX NOS [Concomitant]
     Active Substance: BISACODYL OR DOCUSATE SODIUM
  16. LOTRAMINA [Concomitant]
  17. ATENOLOL. [Concomitant]
     Active Substance: ATENOLOL
     Dosage: 100/25 MG TAB 1X DAILY
  18. TUMS [Concomitant]
     Active Substance: CALCIUM CARBONATE
  19. MEDROXYPROGESTERONE [Concomitant]
     Active Substance: MEDROXYPROGESTERONE
     Dosage: 150 MG EVERY 3 MONTHS

REACTIONS (5)
  - Tremor [Not Recovered/Not Resolved]
  - Enuresis [Not Recovered/Not Resolved]
  - Dizziness [Not Recovered/Not Resolved]
  - Confusional state [Not Recovered/Not Resolved]
  - Tic [Not Recovered/Not Resolved]

NARRATIVE: CASE EVENT DATE: 20191112
